FAERS Safety Report 6127911-3 (Version None)
Quarter: 2009Q1

REPORT INFORMATION
  Report Type: 
  Country: None (occurrence: None)
  Receive Date: 20090319
  Receipt Date: 20090310
  Transmission Date: 20090719
  Serious: Yes (Hospitalization)
  Sender: FDA-Public Use
  Company Number: 2009-0326

PATIENT
  Sex: Female

DRUGS (2)
  1. SOMATULINE L.P. 120MG (LANREOTIDE ACETATE) (LANREOTIDE ACETATE) [Suspect]
     Indication: DIARRHOEA
     Dosage: 9120 MG, 1 IN 1 M)
     Dates: start: 20090220
  2. REMICADE [Concomitant]

REACTIONS (5)
  - HYPOCALCAEMIA [None]
  - HYPOMAGNESAEMIA [None]
  - HYPOPARATHYROIDISM [None]
  - MALABSORPTION [None]
  - MUSCLE SPASMS [None]
